FAERS Safety Report 12983491 (Version 1)
Quarter: 2016Q4

REPORT INFORMATION
  Report Type: Not Available
  Country: CA (occurrence: CA)
  Receive Date: 20161129
  Receipt Date: 20161129
  Transmission Date: 20170207
  Serious: Yes (Life-Threatening)
  Sender: FDA-Public Use
  Company Number: CA-ANIPHARMA-2016-CA-000276

PATIENT
  Age: 20 Year
  Sex: Female

DRUGS (6)
  1. FLUTICASONE-SALMETEROL [Concomitant]
     Dosage: UNKNOWN
     Route: 055
  2. IBUPROFEN (NON-SPECIFIC) [Suspect]
     Active Substance: IBUPROFEN
     Dosage: UNKNOWN
     Route: 065
  3. ACETAMINOPHEN. [Suspect]
     Active Substance: ACETAMINOPHEN
     Dosage: UNKNOWN
     Route: 065
  4. CELECOXIB. [Suspect]
     Active Substance: CELECOXIB
     Dosage: UNKNOWN
     Route: 065
  5. SALBUTAMOL [Concomitant]
     Active Substance: ALBUTEROL
     Dosage: UNKNOWN
     Route: 055
  6. TIOTROPIUM [Concomitant]
     Active Substance: TIOTROPIUM
     Dosage: UNKNOWN
     Route: 055

REACTIONS (2)
  - Kounis syndrome [Unknown]
  - Cardiac arrest [Unknown]
